FAERS Safety Report 24061354 (Version 1)
Quarter: 2024Q3

REPORT INFORMATION
  Report Type: Report from Study
  Country: ZA (occurrence: ZA)
  Receive Date: 20240708
  Receipt Date: 20240708
  Transmission Date: 20241016
  Serious: Yes (Other)
  Sender: ABBVIE
  Company Number: ZA-ABBVIE-5830412

PATIENT
  Age: 49 Year
  Sex: Male

DRUGS (1)
  1. OZURDEX [Suspect]
     Active Substance: DEXAMETHASONE
     Indication: Retinal vein occlusion
     Dosage: TIME INTERVAL: AS NECESSARY: FORM STRENGTH-DEX 0.7MG INS
     Route: 050
     Dates: start: 20240213

REACTIONS (1)
  - Eye excision [Unknown]

NARRATIVE: CASE EVENT DATE: 20240101
